FAERS Safety Report 17729531 (Version 2)
Quarter: 2020Q2

REPORT INFORMATION
  Report Type: Spontaneous
  Country: US (occurrence: US)
  Receive Date: 20200430
  Receipt Date: 20200512
  Transmission Date: 20200714
  Serious: Yes (Other)
  Sender: FDA-Public Use
  Company Number: US-PFIZER INC-2020173659

PATIENT
  Age: 71 Year
  Sex: Female

DRUGS (2)
  1. CELEBREX [Suspect]
     Active Substance: CELECOXIB
     Indication: ARTHRITIS
     Dosage: UNK
  2. DILANTIN [Suspect]
     Active Substance: PHENYTOIN
     Dosage: UNK

REACTIONS (5)
  - Hip fracture [Unknown]
  - Mobility decreased [Unknown]
  - Peroneal nerve palsy [Unknown]
  - Arthropathy [Unknown]
  - Limb asymmetry [Unknown]
